FAERS Safety Report 15108747 (Version 2)
Quarter: 2018Q3

REPORT INFORMATION
  Report Type: Report from Study
  Country: IT (occurrence: IT)
  Receive Date: 20180705
  Receipt Date: 20180817
  Transmission Date: 20181010
  Serious: Yes (Hospitalization)
  Sender: FDA-Public Use
  Company Number: IT-TEVA-2018-IT-919301

PATIENT
  Age: 83 Year
  Sex: Female

DRUGS (7)
  1. ZYLORIC 100 MG COMPRESSE [Concomitant]
     Route: 065
  2. TAVOR [Concomitant]
     Route: 065
  3. LORAZEPAM. [Suspect]
     Active Substance: LORAZEPAM
     Indication: INTENTIONAL PRODUCT MISUSE
     Route: 065
     Dates: start: 20180308, end: 20180308
  4. LASIX [Concomitant]
     Active Substance: FUROSEMIDE
     Route: 065
  5. PANTOPRAZOLE [Concomitant]
     Active Substance: PANTOPRAZOLE
     Route: 065
  6. LYRICA [Concomitant]
     Active Substance: PREGABALIN
     Route: 065
  7. FENTANYL. [Concomitant]
     Active Substance: FENTANYL

REACTIONS (2)
  - Drug abuse [Recovering/Resolving]
  - Sopor [Recovering/Resolving]

NARRATIVE: CASE EVENT DATE: 20180308
